FAERS Safety Report 4418565-2 (Version None)
Quarter: 2004Q3

REPORT INFORMATION
  Report Type: 
  Country: None (occurrence: None)
  Receive Date: 20040809
  Receipt Date: 20040608
  Transmission Date: 20050211
  Serious: No
  Sender: FDA-Public Use
  Company Number: US-GLAXOSMITHKLINE-A0513808A

PATIENT
  Age: 57 Year
  Sex: Female

DRUGS (14)
  1. PAXIL CR [Suspect]
     Indication: DEPRESSION
     Dosage: 25MG PER DAY
     Route: 048
  2. PREVACID [Concomitant]
  3. ALTACE [Concomitant]
  4. KLONOPIN [Concomitant]
  5. LOMOTIL [Concomitant]
  6. DYAZIDE [Concomitant]
  7. SUDAFED S.A. [Concomitant]
  8. SINGULAIR [Concomitant]
  9. TYLENOL [Concomitant]
  10. CELEBREX [Concomitant]
  11. NYSTATIN [Concomitant]
  12. CODEINE PHOSPHATE AND ACETAMINOPHEN [Concomitant]
  13. PRAVACHOL [Concomitant]
  14. LOPID [Concomitant]

REACTIONS (5)
  - ABDOMINAL DISTENSION [None]
  - BLISTER [None]
  - DEPRESSION [None]
  - FATIGUE [None]
  - HYPERHIDROSIS [None]
